FAERS Safety Report 5883756-0 (Version None)
Quarter: 2008Q3

REPORT INFORMATION
  Report Type: 
  Country: None (occurrence: None)
  Receive Date: 20080915
  Receipt Date: 20080905
  Transmission Date: 20090109
  Serious: Yes (Congenital Anomaly)
  Sender: FDA-Public Use
  Company Number: A0504423B

PATIENT
  Sex: Male
  Weight: 3.6 kg

DRUGS (2)
  1. PAXIL [Suspect]
     Dosage: 20MG PER DAY
  2. VITAMIN TAB [Concomitant]
     Indication: DRUG USE FOR UNKNOWN INDICATION
     Route: 048

REACTIONS (4)
  - CARDIAC MURMUR [None]
  - CONGENITAL ABSENCE OF BILE DUCTS [None]
  - DRUG EXPOSURE DURING PREGNANCY [None]
  - MULTIPLE CONGENITAL ABNORMALITIES [None]
